FAERS Safety Report 9608063 (Version 1)
Quarter: 2013Q4

REPORT INFORMATION
  Report Type: Spontaneous
  Country: CA (occurrence: None)
  Receive Date: 20131007
  Receipt Date: 20131007
  Transmission Date: 20140711
  Serious: Yes (Other)
  Sender: FDA-Public Use
  Company Number: 2013P1019727

PATIENT
  Age: 15 Year
  Sex: Female

DRUGS (1)
  1. DOXYCYCLINE [Suspect]
     Indication: ACNE
     Dosage: 100 MG; QD

REACTIONS (13)
  - Fatigue [None]
  - Myalgia [None]
  - Local swelling [None]
  - Local swelling [None]
  - Dermatitis [None]
  - Headache [None]
  - Mood altered [None]
  - Swelling face [None]
  - Rash erythematous [None]
  - Skin mass [None]
  - Antinuclear antibody increased [None]
  - Antineutrophil cytoplasmic antibody positive [None]
  - Epstein-Barr virus test positive [None]
